FAERS Safety Report 4268549-2 (Version None)
Quarter: 2004Q1

REPORT INFORMATION
  Report Type: 
  Country: None (occurrence: None)
  Receive Date: 20040108
  Receipt Date: 20031229
  Transmission Date: 20041129
  Serious: Yes (Death)
  Sender: FDA-Public Use
  Company Number: US-JNJFOC-20040100119

PATIENT
  Age: 68 Year
  Sex: Male
  Weight: 91.173 kg

DRUGS (3)
  1. REMICADE [Suspect]
     Indication: CROHN'S DISEASE
     Dosage: 5 MG/KG
  2. COUMADIN [Concomitant]
  3. ENTOCORT (BUDENOSIDE) [Concomitant]

REACTIONS (1)
  - DEATH [None]
